FAERS Safety Report 8606821 (Version 3)
Quarter: 2014Q1

REPORT INFORMATION
  Report Type: Spontaneous
  Country: US (occurrence: US)
  Receive Date: 20120611
  Receipt Date: 20140117
  Transmission Date: 20141002
  Serious: No
  Sender: FDA-Public Use
  Company Number: US-ASTRAZENECA-2012SE35787

PATIENT
  Age: 49 Year
  Sex: Female
  Weight: 88.5 kg

DRUGS (14)
  1. NEXIUM [Suspect]
     Indication: GASTROOESOPHAGEAL REFLUX DISEASE
     Route: 048
  2. NEXIUM [Suspect]
     Indication: GASTROOESOPHAGEAL REFLUX DISEASE
     Route: 048
     Dates: start: 20110630
  3. TUMS [Concomitant]
  4. PEPTO-BISMOL [Concomitant]
  5. FUROSEMIDE [Concomitant]
  6. SPIRONOLACTONE [Concomitant]
     Indication: HYPERTENSION
  7. LEXAPRO [Concomitant]
     Indication: DEPRESSION
  8. LEXAPRO [Concomitant]
     Indication: DEPRESSION
     Dates: start: 20110602
  9. TRAZODONE [Concomitant]
     Indication: SLEEP DISORDER
  10. HYDROXYZINE [Concomitant]
     Indication: ANXIETY
  11. LORTAB [Concomitant]
     Indication: PAIN
     Dosage: 10-500 THREE TIMES A DAY
  12. POTASSIUM GLUCONATE [Concomitant]
     Indication: CARDIAC DISORDER
  13. POTASSIUM GLUCONATE [Concomitant]
     Indication: PULMONARY VASCULAR DISORDER
  14. FERROUS SULFATE [Concomitant]

REACTIONS (12)
  - Osteoporosis [Unknown]
  - Multiple fractures [Unknown]
  - Ankle fracture [Unknown]
  - Full blood count decreased [Unknown]
  - Loss of consciousness [Unknown]
  - Fall [Unknown]
  - Arthritis [Unknown]
  - Cataract [Unknown]
  - Liver disorder [Unknown]
  - Depression [Unknown]
  - Fibula fracture [Unknown]
  - Joint injury [Unknown]
